FAERS Safety Report 14006798 (Version 1)
Quarter: 2017Q3

REPORT INFORMATION
  Report Type: Spontaneous
  Country: US (occurrence: None)
  Receive Date: 20170922
  Receipt Date: 20170922
  Transmission Date: 20171128
  Serious: No
  Sender: FDA-Public Use
  Company Number: None

PATIENT
  Age: 66 Year
  Sex: Female

DRUGS (1)
  1. AVONEX [Suspect]
     Active Substance: INTERFERON BETA-1A
     Indication: MULTIPLE SCLEROSIS
     Dosage: DOSE - 30MCG/5ML
     Route: 030
     Dates: start: 20161018

REACTIONS (2)
  - Migraine [None]
  - Therapy cessation [None]

NARRATIVE: CASE EVENT DATE: 201707
